FAERS Safety Report 10382141 (Version 1)
Quarter: 2014Q3

REPORT INFORMATION
  Report Type: Spontaneous
  Country: ES (occurrence: ES)
  Receive Date: 20140813
  Receipt Date: 20140813
  Transmission Date: 20150326
  Serious: Yes (Other)
  Sender: FDA-Public Use
  Company Number: ES-ABBVIE-14P-144-1271683-00

PATIENT
  Age: 29 Year
  Sex: Male

DRUGS (1)
  1. DEPAKINE CHRONO [Suspect]
     Active Substance: VALPROATE SODIUM
     Indication: EPILEPSY
     Route: 048
     Dates: start: 2004

REACTIONS (4)
  - Joint effusion [Unknown]
  - Periarthritis calcarea [Unknown]
  - Tendonitis [Unknown]
  - Foot fracture [Unknown]

NARRATIVE: CASE EVENT DATE: 20121003
